FAERS Safety Report 7901084-6 (Version None)
Quarter: 2011Q4

REPORT INFORMATION
  Report Type: 
  Country: None (occurrence: None)
  Receive Date: 20111108
  Receipt Date: 20111031
  Transmission Date: 20120403
  Serious: Yes (Other)
  Sender: FDA-Public Use
  Company Number: FI-ELI_LILLY_AND_COMPANY-FI201111000975

PATIENT
  Age: 57 Year
  Sex: Female

DRUGS (2)
  1. GEMCITABINE HYDROCHLORIDE [Suspect]
     Indication: OVARIAN EPITHELIAL CANCER
  2. CARBOPLATIN [Concomitant]

REACTIONS (2)
  - VASCULITIS [None]
  - DEEP VEIN THROMBOSIS [None]
